FAERS Safety Report 8152777-X (Version None)
Quarter: 2012Q1

REPORT INFORMATION
  Report Type: 
  Country: None (occurrence: None)
  Receive Date: 20120103
  Receipt Date: 20110902
  Transmission Date: 20120608
  Serious: No
  Sender: FDA-Public Use
  Company Number: AE-2011-000679

PATIENT
  Age: 62 Year
  Sex: Male
  Weight: 111.1313 kg

DRUGS (4)
  1. INCIVEK [Suspect]
     Dosage: 2250 MG (750 MG, 3 IN 1 D)
     Dates: start: 20110721
  2. PEGASYS [Concomitant]
  3. COPEGUS [Concomitant]
  4. LASIN/HCTZ (ANTIHYPERTENSIVES) [Concomitant]

REACTIONS (3)
  - ANORECTAL DISCOMFORT [None]
  - PRURITUS [None]
  - RECTAL HAEMORRHAGE [None]
